FAERS Safety Report 5299621-6 (Version None)
Quarter: 2007Q2

REPORT INFORMATION
  Report Type: 
  Country: None (occurrence: None)
  Receive Date: 20070417
  Receipt Date: 20070410
  Transmission Date: 20071010
  Serious: Yes (Life-Threatening, Other)
  Sender: FDA-Public Use
  Company Number: DE-BOEHRINGER INGELHEIM GMBH, GERMANY-2007-DE-01924DE

PATIENT
  Sex: Male
  Weight: 84 kg

DRUGS (6)
  1. ALNA OCAS [Suspect]
     Indication: URINARY RETENTION
     Route: 048
     Dates: start: 20051124, end: 20070307
  2. ASPIRIN [Concomitant]
  3. ZOCOR [Concomitant]
  4. TORSEMIDE [Concomitant]
  5. DIGITOXIN TAB [Concomitant]
  6. INSULIN [Concomitant]

REACTIONS (8)
  - BLOOD PRESSURE DECREASED [None]
  - CIRCULATORY COLLAPSE [None]
  - DIZZINESS [None]
  - FALL [None]
  - INJURY [None]
  - LOSS OF CONSCIOUSNESS [None]
  - SCRATCH [None]
  - SYNCOPE [None]
